FAERS Safety Report 7587113-0 (Version None)
Quarter: 2011Q3

REPORT INFORMATION
  Report Type: 
  Country: None (occurrence: None)
  Receive Date: 20110701
  Receipt Date: 20110628
  Transmission Date: 20111222
  Serious: Yes (Death)
  Sender: FDA-Public Use
  Company Number: PHHY2011US57575

PATIENT
  Sex: Male

DRUGS (4)
  1. COUMADIN [Concomitant]
     Dosage: 2 MG, UNK
  2. ASPIRIN [Concomitant]
     Dosage: 325 MG, UNK
  3. MULTIVIT [Concomitant]
     Dosage: UNK UKN, UNK
  4. AFINITOR [Suspect]
     Dosage: 1 DF, DAILY
     Route: 048

REACTIONS (1)
  - DEATH [None]
